FAERS Safety Report 18095828 (Version 1)
Quarter: 2020Q3

REPORT INFORMATION
  Report Type: Spontaneous
  Country: IT (occurrence: IT)
  Receive Date: 20200730
  Receipt Date: 20200730
  Transmission Date: 20201103
  Serious: Yes (Other)
  Sender: FDA-Public Use
  Company Number: IT-SAMSUNG BIOEPIS-SB-2020-23021

PATIENT
  Age: 64 Year
  Sex: Female

DRUGS (2)
  1. ACITRETIN. [Suspect]
     Active Substance: ACITRETIN
     Indication: PRODUCT USED FOR UNKNOWN INDICATION
     Dosage: UNKNOWN
     Route: 065
  2. BENEPALI [Suspect]
     Active Substance: ETANERCEPT
     Indication: PSORIASIS
     Dosage: SOLUTION FOR INJECTION
     Route: 058
     Dates: start: 20180401, end: 20200304

REACTIONS (3)
  - Therapeutic response changed [Unknown]
  - Psoriasis [Unknown]
  - Rash pustular [Unknown]

NARRATIVE: CASE EVENT DATE: 20200218
